FAERS Safety Report 9169076 (Version 3)
Quarter: 2013Q2

REPORT INFORMATION
  Report Type: Spontaneous
  Country: US (occurrence: US)
  Receive Date: 20130318
  Receipt Date: 20130502
  Transmission Date: 20140414
  Serious: Yes (Other)
  Sender: FDA-Public Use
  Company Number: US-GLAXOSMITHKLINE-A1010957A

PATIENT
  Age: 57 Year
  Sex: Male

DRUGS (6)
  1. VOTRIENT [Suspect]
     Indication: RENAL CELL CARCINOMA
     Dosage: 600MG PER DAY
     Route: 048
     Dates: start: 20110121
  2. LISINOPRIL [Concomitant]
  3. RANITIDINE [Concomitant]
  4. DECADRON [Concomitant]
  5. AMBIEN [Concomitant]
  6. DEXAMETHASONE [Concomitant]

REACTIONS (5)
  - Haemorrhage [Recovered/Resolved]
  - Palmar-plantar erythrodysaesthesia syndrome [Not Recovered/Not Resolved]
  - Diarrhoea [Not Recovered/Not Resolved]
  - Contusion [Recovered/Resolved]
  - Dyspnoea [Recovered/Resolved]
